FAERS Safety Report 25628150 (Version 1)
Quarter: 2025Q3

REPORT INFORMATION
  Report Type: Spontaneous
  Country: GB (occurrence: GB)
  Receive Date: 20250731
  Receipt Date: 20250731
  Transmission Date: 20251021
  Serious: Yes (Disabling, Other)
  Sender: ALKEM
  Company Number: None

PATIENT
  Age: 36 Year
  Sex: Male

DRUGS (1)
  1. FINASTERIDE [Suspect]
     Active Substance: FINASTERIDE
     Indication: Alopecia
     Route: 065
     Dates: start: 20250320, end: 20250405

REACTIONS (3)
  - Peyronie^s disease [Not Recovered/Not Resolved]
  - Penile curvature [Not Recovered/Not Resolved]
  - Fibrosis [Not Recovered/Not Resolved]
